FAERS Safety Report 7450696-5 (Version None)
Quarter: 2011Q2

REPORT INFORMATION
  Report Type: 
  Country: None (occurrence: None)
  Receive Date: 20110429
  Receipt Date: 20110429
  Transmission Date: 20111010
  Serious: No
  Sender: FDA-Public Use
  Company Number: None

PATIENT
  Age: 53 Year
  Sex: Female
  Weight: 99.7913 kg

DRUGS (1)
  1. FLUCONAZOLE [Suspect]
     Indication: INFECTION
     Dosage: 150 MG
     Dates: start: 20110331

REACTIONS (2)
  - PAIN IN EXTREMITY [None]
  - ERYTHEMA [None]
